FAERS Safety Report 4705191-0 (Version None)
Quarter: 2005Q2

REPORT INFORMATION
  Report Type: 
  Country: None (occurrence: None)
  Receive Date: 20050628
  Receipt Date: 20050616
  Transmission Date: 20051028
  Serious: Yes (Hospitalization)
  Sender: FDA-Public Use
  Company Number: 2005083243

PATIENT
  Age: 53 Year
  Sex: Male

DRUGS (1)
  1. ZITHROMAX [Suspect]
     Indication: SINUSITIS
     Dosage: 500 MG (500 MG, DAILY), ORAL
     Route: 048
     Dates: start: 20050520, end: 20050522

REACTIONS (3)
  - AUTOIMMUNE THROMBOCYTOPENIA [None]
  - HAEMATOMA [None]
  - HAEMORRHAGE [None]
